FAERS Safety Report 11057386 (Version 1)
Quarter: 2015Q2

REPORT INFORMATION
  Report Type: Spontaneous
  Country: US (occurrence: US)
  Receive Date: 20150422
  Receipt Date: 20150422
  Transmission Date: 20150821
  Serious: No
  Sender: FDA-Public Use
  Company Number: US-PFIZER INC-2015136892

PATIENT
  Age: 27 Year
  Sex: Male

DRUGS (1)
  1. BOSULIF [Suspect]
     Active Substance: BOSUTINIB MONOHYDRATE
     Indication: CHRONIC LYMPHOCYTIC LEUKAEMIA
     Dosage: 500 MG, DAILY
     Route: 048
     Dates: start: 20150315, end: 20150416

REACTIONS (2)
  - Chronic lymphocytic leukaemia [Unknown]
  - Disease progression [Unknown]
